FAERS Safety Report 9344726 (Version 1)
Quarter: 2013Q2

REPORT INFORMATION
  Report Type: Spontaneous
  Country: US (occurrence: US)
  Receive Date: 20130612
  Receipt Date: 20130612
  Transmission Date: 20140414
  Serious: Yes (Other)
  Sender: FDA-Public Use
  Company Number: US-PFIZER INC-2013177155

PATIENT
  Age: 73 Year
  Sex: Female
  Weight: 80.73 kg

DRUGS (2)
  1. NEURONTIN [Suspect]
     Indication: BACK PAIN
     Dosage: 600 MG, 3X/DAY
  2. LISINOPRIL [Concomitant]
     Indication: HYPERTENSION
     Dosage: UNK

REACTIONS (7)
  - Neoplasm malignant [Unknown]
  - Cardiac disorder [Unknown]
  - Pelvic fracture [Unknown]
  - Nephropathy [Unknown]
  - Diabetes mellitus [Unknown]
  - Osteoporosis [Unknown]
  - Pain [Unknown]
